FAERS Safety Report 7668163-2 (Version None)
Quarter: 2011Q3

REPORT INFORMATION
  Report Type: 
  Country: None (occurrence: None)
  Receive Date: 20110808
  Receipt Date: 20110803
  Transmission Date: 20111222
  Serious: Yes (Other)
  Sender: FDA-Public Use
  Company Number: SG-PFIZER INC-2011176865

PATIENT
  Age: 25 Year
  Sex: Male

DRUGS (1)
  1. PHENYTOIN [Suspect]
     Dosage: 260 MG, 1X/DAY
     Route: 048
     Dates: start: 20100820, end: 20100830

REACTIONS (1)
  - RASH MACULO-PAPULAR [None]
